FAERS Safety Report 8367358-2 (Version None)
Quarter: 2012Q2

REPORT INFORMATION
  Report Type: 
  Country: None (occurrence: None)
  Receive Date: 20120517
  Receipt Date: 20120511
  Transmission Date: 20120825
  Serious: Yes (Death)
  Sender: FDA-Public Use
  Company Number: PH-CELGENEUS-128-21880-12042363

PATIENT
  Sex: Female
  Weight: 71.7 kg

DRUGS (1)
  1. REVLIMID [Suspect]
     Indication: MULTIPLE MYELOMA
     Route: 048
     Dates: start: 20111016, end: 20120414

REACTIONS (3)
  - MULTI-ORGAN FAILURE [None]
  - MULTIPLE MYELOMA [None]
  - PNEUMONIA [None]
